FAERS Safety Report 9084488 (Version 1)
Quarter: 2013Q1

REPORT INFORMATION
  Report Type: Report from Study
  Country: US (occurrence: US)
  Receive Date: 20130131
  Receipt Date: 20130131
  Transmission Date: 20140127
  Serious: Yes (Other)
  Sender: FDA-Public Use
  Company Number: US-ABBOTT-12P-163-0998369-00

PATIENT
  Age: 75 Year
  Sex: Female

DRUGS (3)
  1. HUMIRA [Suspect]
     Indication: RHEUMATOID ARTHRITIS
  2. HUMIRA [Suspect]
     Dates: start: 20121004
  3. SIMVASTATIN [Concomitant]
     Indication: BLOOD CHOLESTEROL
     Dosage: 40 MG DAILY

REACTIONS (15)
  - Hysterectomy [Unknown]
  - Oesophageal spasm [Unknown]
  - Oesophageal dilatation [Unknown]
  - Chest pain [Unknown]
  - Gastrointestinal haemorrhage [Unknown]
  - Change of bowel habit [Unknown]
  - Polyp [Unknown]
  - Basal cell carcinoma [Unknown]
  - Drug dispensing error [Unknown]
  - Incision site haemorrhage [Unknown]
  - Injection site erythema [Unknown]
  - Injection site pain [Unknown]
  - Pruritus [Unknown]
  - Pain [Unknown]
  - Hypersensitivity [Unknown]
